FAERS Safety Report 7211650-1 (Version None)
Quarter: 2011Q1

REPORT INFORMATION
  Report Type: 
  Country: None (occurrence: None)
  Receive Date: 20110105
  Receipt Date: 20101228
  Transmission Date: 20110831
  Serious: Yes (Hospitalization)
  Sender: FDA-Public Use
  Company Number: FR-SANOFI-AVENTIS-2010SA078404

PATIENT
  Age: 71 Year
  Sex: Female

DRUGS (6)
  1. PLAVIX [Suspect]
     Route: 048
  2. METHOTREXATE [Concomitant]
  3. CORTANCYL [Suspect]
     Indication: RHEUMATOID ARTHRITIS
     Route: 048
  4. KARDEGIC [Suspect]
     Route: 048
  5. DAFALGAN [Concomitant]
  6. CONTRAMAL [Concomitant]

REACTIONS (1)
  - ANAEMIA [None]
